FAERS Safety Report 10054920 (Version 3)
Quarter: 2014Q2

REPORT INFORMATION
  Report Type: Spontaneous
  Country: US (occurrence: US)
  Receive Date: 20140402
  Receipt Date: 20140609
  Transmission Date: 20141212
  Serious: No
  Sender: FDA-Public Use
  Company Number: US-009507513-1404USA000448

PATIENT
  Age: 47 Year
  Sex: Female
  Weight: 72.56 kg

DRUGS (5)
  1. NEXPLANON [Suspect]
     Indication: CONTRACEPTION
     Dosage: 68 MG/ONE ROD EVERY THREE YEARS
     Route: 059
     Dates: start: 20131219, end: 20140326
  2. FLEXERIL [Concomitant]
  3. TRAMADOL HYDROCHLORIDE [Concomitant]
  4. OXYBUTYNIN [Concomitant]
  5. IBUPROFEN [Concomitant]

REACTIONS (10)
  - Haemorrhage [Unknown]
  - Muscle spasms [Unknown]
  - Metrorrhagia [Recovered/Resolved]
  - Device breakage [Recovered/Resolved]
  - Incorrect drug administration duration [Unknown]
  - Device difficult to use [Recovered/Resolved]
  - Medical device complication [Recovered/Resolved]
  - Incorrect route of drug administration [Unknown]
  - Device dislocation [Recovered/Resolved]
  - Device deployment issue [Recovered/Resolved]
